FAERS Safety Report 10098354 (Version 1)
Quarter: 2014Q2

REPORT INFORMATION
  Report Type: Spontaneous
  Country: US (occurrence: None)
  Receive Date: 20140422
  Receipt Date: 20140422
  Transmission Date: 20141212
  Serious: Yes (Hospitalization)
  Sender: FDA-Public Use
  Company Number: None

PATIENT
  Age: 79 Year
  Sex: Male
  Weight: 66 kg

DRUGS (2)
  1. WARFARIN [Suspect]
     Indication: ATRIAL FIBRILLATION
     Route: 048
     Dates: start: 20111003
  2. CIPROFLOXACIN [Suspect]
     Route: 048
     Dates: start: 20140207, end: 20140210

REACTIONS (4)
  - Haemoglobin decreased [None]
  - International normalised ratio increased [None]
  - Haemorrhage [None]
  - Haemarthrosis [None]
